FAERS Safety Report 21348790 (Version 1)
Quarter: 2022Q3

REPORT INFORMATION
  Report Type: Spontaneous
  Country: IE (occurrence: IE)
  Receive Date: 20220919
  Receipt Date: 20220919
  Transmission Date: 20221026
  Serious: Yes (Hospitalization, Other)
  Sender: FDA-Public Use
  Company Number: IE-BAYER-2022A125581

PATIENT

DRUGS (2)
  1. NAPROXEN SODIUM [Suspect]
     Active Substance: NAPROXEN SODIUM
     Indication: Arthritis
     Dosage: UNK
  2. SULFAMETHAZINE [Concomitant]
     Active Substance: SULFAMETHAZINE
     Dosage: UNK

REACTIONS (5)
  - Cerebrovascular accident [None]
  - Atrial fibrillation [None]
  - Atrial natriuretic peptide [None]
  - Pain [None]
  - Musculoskeletal stiffness [None]
